FAERS Safety Report 4348889-9 (Version None)
Quarter: 2004Q1

REPORT INFORMATION
  Report Type: 
  Country: None (occurrence: None)
  Receive Date: 20040325
  Receipt Date: 20040213
  Transmission Date: 20041129
  Serious: No
  Sender: FDA-Public Use
  Company Number: USA040259385

PATIENT
  Age: 60 Year
  Sex: Female
  Weight: 45 kg

DRUGS (5)
  1. FORTEO [Suspect]
     Indication: OSTEOPOROSIS
     Dates: start: 20040127
  2. MEDROL (METHPREDNISOLONE) [Concomitant]
  3. IMURAN [Concomitant]
  4. ACTIGALL (URSODOXYCHOLIC ACID) [Concomitant]
  5. ESTINYL (ETHINYLESTRADIOL) [Concomitant]

REACTIONS (3)
  - ABDOMINAL DISTENSION [None]
  - ARTHRALGIA [None]
  - ARTHRITIS [None]
